FAERS Safety Report 14746135 (Version 2)
Quarter: 2018Q2

REPORT INFORMATION
  Report Type: Report from Study
  Country: BE (occurrence: BE)
  Receive Date: 20180411
  Receipt Date: 20180427
  Transmission Date: 20180711
  Serious: No
  Sender: FDA-Public Use
  Company Number: PHHO2017BE017643

PATIENT
  Age: 52 Year
  Sex: Female
  Weight: 56.7 kg

DRUGS (4)
  1. EVEROLIMUS. [Suspect]
     Active Substance: EVEROLIMUS
     Dosage: 5 MG, UNK
     Route: 048
  2. FULVESTRANT. [Suspect]
     Active Substance: FULVESTRANT
     Indication: INVASIVE LOBULAR BREAST CARCINOMA
     Route: 030
  3. OMEPRAZOLE. [Concomitant]
     Active Substance: OMEPRAZOLE
     Indication: ABDOMINAL PAIN UPPER
     Dosage: 40 MG, UNK
     Route: 065
     Dates: start: 20160624
  4. EVEROLIMUS. [Suspect]
     Active Substance: EVEROLIMUS
     Indication: INVASIVE LOBULAR BREAST CARCINOMA
     Dosage: 10 MG, UNK
     Route: 048
     Dates: start: 20160527, end: 20161216

REACTIONS (3)
  - Aspartate aminotransferase increased [Recovering/Resolving]
  - Alanine aminotransferase increased [Recovering/Resolving]
  - Gamma-glutamyltransferase increased [Recovering/Resolving]

NARRATIVE: CASE EVENT DATE: 20161118
